FAERS Safety Report 4372342-X (Version None)
Quarter: 2004Q2

REPORT INFORMATION
  Report Type: 
  Country: None (occurrence: None)
  Receive Date: 20040603
  Receipt Date: 20040517
  Transmission Date: 20050107
  Serious: No
  Sender: FDA-Public Use
  Company Number: 2004-05-1425

PATIENT
  Age: 52 Year
  Sex: Female

DRUGS (2)
  1. PEG-INTRON [Suspect]
     Indication: HEPATITIS
     Dosage: SUBCUTANEOUS
     Route: 058
  2. REBETOL [Suspect]
     Indication: HEPATITIS
     Dosage: ORAL
     Route: 048

REACTIONS (4)
  - ASCITES [None]
  - BALANCE DISORDER [None]
  - OEDEMA PERIPHERAL [None]
  - TREMOR [None]
